FAERS Safety Report 4826016-9 (Version None)
Quarter: 2005Q4

REPORT INFORMATION
  Report Type: 
  Country: None (occurrence: None)
  Receive Date: 20051111
  Receipt Date: 20050815
  Transmission Date: 20060501
  Serious: Yes (Hospitalization)
  Sender: FDA-Public Use
  Company Number: US-MERCK-0508USA02926

PATIENT
  Age: 81 Year
  Sex: Female
  Weight: 95 kg

DRUGS (5)
  1. VIOXX [Suspect]
     Indication: ARTHRITIS
     Route: 048
     Dates: start: 20030515, end: 20040901
  2. GLUCOPHAGE [Concomitant]
     Route: 065
  3. NEURONTIN [Concomitant]
     Route: 065
  4. ATENOLOL [Concomitant]
     Route: 065
  5. NAPROXEN [Concomitant]
     Indication: PAIN
     Route: 065

REACTIONS (5)
  - ANGINA UNSTABLE [None]
  - ARTERIOSCLEROSIS CORONARY ARTERY [None]
  - CORONARY ARTERY DISEASE [None]
  - GASTRIC CANCER [None]
  - MYOCARDIAL INFARCTION [None]
